FAERS Safety Report 6142358-1 (Version None)
Quarter: 2009Q2

REPORT INFORMATION
  Report Type: 
  Country: None (occurrence: None)
  Receive Date: 20090403
  Receipt Date: 20090331
  Transmission Date: 20091009
  Serious: Yes (Death)
  Sender: FDA-Public Use
  Company Number: US-JNJFOC-20090400454

PATIENT
  Age: 27 Year
  Sex: Female

DRUGS (2)
  1. DURAGESIC-100 [Suspect]
     Indication: RADICULAR PAIN
     Route: 062
  2. UNKNOWN MEDICATIONS [Concomitant]

REACTIONS (3)
  - ANALGESIC DRUG LEVEL INCREASED [None]
  - CHEST INJURY [None]
  - HEAD INJURY [None]
